FAERS Safety Report 5670474-7 (Version None)
Quarter: 2008Q1

REPORT INFORMATION
  Report Type: 
  Country: None (occurrence: None)
  Receive Date: 20080313
  Receipt Date: 20080303
  Transmission Date: 20080703
  Serious: Yes (Hospitalization, Other)
  Sender: FDA-Public Use
  Company Number: 231329J08USA

PATIENT
  Age: 36 Year
  Sex: Female
  Weight: 84.8226 kg

DRUGS (8)
  1. REBIF [Suspect]
     Indication: RELAPSING-REMITTING MULTIPLE SCLEROSIS
     Dosage: 44 MCG, 3 IN 1 WEEKS, SUBCUTANEOUS
     Route: 058
     Dates: start: 20050801
  2. TOPAMAX [Concomitant]
  3. LEVOXYL [Concomitant]
  4. PROVIGIL [Concomitant]
  5. WELLBUTRIN [Concomitant]
  6. FOLBEE (ALL OTHER THERAPEUTIC PRODUCTS) [Concomitant]
  7. MAG-OX (MAGNESIUM OXIDE) [Concomitant]
  8. ACETYLSALICYLIC ACID SRT [Concomitant]

REACTIONS (2)
  - MIGRAINE [None]
  - OSTEOARTHRITIS [None]
